FAERS Safety Report 9385469 (Version 3)
Quarter: 2014Q2

REPORT INFORMATION
  Report Type: Spontaneous
  Country: US (occurrence: US)
  Receive Date: 20130705
  Receipt Date: 20140408
  Transmission Date: 20141212
  Serious: Yes (Hospitalization)
  Sender: FDA-Public Use
  Company Number: US-GLAXOSMITHKLINE-A1030206A

PATIENT
  Age: 42 Year
  Sex: Female

DRUGS (1)
  1. AVANDAMET [Suspect]
     Indication: TYPE 2 DIABETES MELLITUS
     Route: 048
     Dates: start: 200410, end: 20071019

REACTIONS (3)
  - Cerebrovascular accident [Unknown]
  - Coronary artery bypass [Unknown]
  - Angina pectoris [Unknown]
